FAERS Safety Report 18884404 (Version 1)
Quarter: 2021Q1

REPORT INFORMATION
  Report Type: Spontaneous
  Country: GB (occurrence: GB)
  Receive Date: 20210211
  Receipt Date: 20210211
  Transmission Date: 20210420
  Serious: Yes (Disabling, Other)
  Sender: FDA-Public Use
  Company Number: GB-SUN PHARMACEUTICAL INDUSTRIES LTD-2021RR-280408

PATIENT
  Age: 23 Year
  Sex: Female
  Weight: 50 kg

DRUGS (3)
  1. SERTRALINE [Suspect]
     Active Substance: SERTRALINE HYDROCHLORIDE
     Indication: DEPRESSION
     Dosage: 50 MILLIGRAM, UNK
     Route: 048
     Dates: start: 20171217, end: 20180106
  2. PROGESTERONE. [Concomitant]
     Active Substance: PROGESTERONE
     Indication: ILL-DEFINED DISORDER
     Dosage: UNK
     Route: 065
  3. GABAPENTIN. [Suspect]
     Active Substance: GABAPENTIN
     Indication: PAIN
     Dosage: 300 MILLIGRAM, UNK
     Route: 048
     Dates: start: 20171204, end: 20180105

REACTIONS (2)
  - Depression suicidal [Recovered/Resolved with Sequelae]
  - Paranoia [Recovered/Resolved]

NARRATIVE: CASE EVENT DATE: 20171230
